FAERS Safety Report 18347403 (Version 1)
Quarter: 2020Q4

REPORT INFORMATION
  Report Type: Report from Study
  Country: PH (occurrence: PH)
  Receive Date: 20201006
  Receipt Date: 20201006
  Transmission Date: 20210114
  Serious: Yes (Hospitalization)
  Sender: FDA-Public Use
  Company Number: NVSC2020PH261463

PATIENT
  Sex: Male

DRUGS (11)
  1. INSPRA [Concomitant]
     Active Substance: EPLERENONE
     Indication: HYPERTENSION
     Dosage: 1 DF, BID
     Route: 048
  2. FLUIMUCIL [Concomitant]
     Active Substance: ACETYLCYSTEINE
     Indication: MUCOSAL DISORDER
     Dosage: 1 DF, BID (1 TAB IN 100CC WATER AND DRINK)
     Route: 048
  3. TMZ MR [Concomitant]
     Indication: ANGINA PECTORIS
     Dosage: 1 DF, BID
     Route: 048
  4. CORALAN [Concomitant]
     Active Substance: IVABRADINE HYDROCHLORIDE
     Indication: ANGINA PECTORIS
     Dosage: 1 DF, BID
     Route: 048
  5. L-CARNITINE [Concomitant]
     Active Substance: LEVOCARNITINE
     Indication: NUTRITIONAL SUPPLEMENTATION
     Dosage: 1 DF, BID
     Route: 048
  6. CO AMOXICLAV [Concomitant]
     Active Substance: AMOXICILLIN\CLAVULANIC ACID
     Indication: ANTIBIOTIC THERAPY
     Dosage: 1 DF, BID
     Route: 065
  7. ENTRESTO [Suspect]
     Active Substance: SACUBITRIL\VALSARTAN
     Indication: HYPERTENSION
     Dosage: 1 DF, BID
     Route: 048
  8. LASIX [Concomitant]
     Active Substance: FUROSEMIDE
     Indication: DIURETIC THERAPY
     Dosage: 1 DF, QD
     Route: 048
  9. ITORVAZ [Concomitant]
     Active Substance: ATORVASTATIN CALCIUM
     Indication: BLOOD CHOLESTEROL
     Dosage: 1 DF, QD
     Route: 048
  10. EMPAGLIFLOZIN [Concomitant]
     Active Substance: EMPAGLIFLOZIN
     Indication: DIABETES MELLITUS
     Dosage: 1 UNK, BID
     Route: 048
  11. ECOSPRIN C [Concomitant]
     Indication: THROMBOSIS
     Dosage: 1 DF, QD
     Route: 048

REACTIONS (5)
  - Cardiac failure acute [Unknown]
  - Suspected COVID-19 [Unknown]
  - Acute coronary syndrome [Unknown]
  - Pneumonia [Unknown]
  - Product use in unapproved indication [Unknown]
